FAERS Safety Report 24002115 (Version 2)
Quarter: 2025Q4

REPORT INFORMATION
  Report Type: Spontaneous
  Country: EU (occurrence: EU)
  Receive Date: 20240622
  Receipt Date: 20251208
  Transmission Date: 20260117
  Serious: Yes (Hospitalization)
  Sender: AUROBINDO
  Company Number: EU-JNJFOC-20240611724

PATIENT
  Age: 48 Year
  Sex: Female

DRUGS (5)
  1. TENOFOVIR [Suspect]
     Active Substance: TENOFOVIR
     Indication: HIV infection
     Dosage: UNK
     Route: 065
  2. COBICISTAT\DARUNAVIR ETHANOLATE [Interacting]
     Active Substance: COBICISTAT\DARUNAVIR ETHANOLATE
     Indication: HIV infection
     Dosage: UNK
  3. EMTRICITABINE [Suspect]
     Active Substance: EMTRICITABINE
     Indication: HIV infection
     Dosage: UNK
     Route: 065
  4. PREDNISONE [Suspect]
     Active Substance: PREDNISONE
     Indication: Ligament rupture
     Dosage: FOR 2 WEEKS IN AUGUST
     Route: 065
  5. TRIAMCINOLONE [Suspect]
     Active Substance: TRIAMCINOLONE
     Indication: Ligament rupture
     Dosage: 2 DOSAGE FORM
     Route: 065

REACTIONS (2)
  - Secondary adrenocortical insufficiency [Recovering/Resolving]
  - Drug interaction [Recovering/Resolving]
